FAERS Safety Report 6580037-7 (Version None)
Quarter: 2010Q1

REPORT INFORMATION
  Report Type: 
  Country: None (occurrence: None)
  Receive Date: 20100212
  Receipt Date: 20100128
  Transmission Date: 20100710
  Serious: Yes (Hospitalization)
  Sender: FDA-Public Use
  Company Number: CG-MERCK-1001USA03848

PATIENT
  Age: 18 Year
  Sex: Female

DRUGS (1)
  1. STROMECTOL [Suspect]
     Indication: ONCHOCERCIASIS
     Route: 065
     Dates: start: 20091212

REACTIONS (10)
  - ABNORMAL BEHAVIOUR [None]
  - ASTHENIA [None]
  - COMA [None]
  - ENCEPHALOPATHY [None]
  - GAIT DISTURBANCE [None]
  - HAEMORRHAGE [None]
  - HEADACHE [None]
  - PYREXIA [None]
  - URINARY INCONTINENCE [None]
  - VERTIGO [None]
